FAERS Safety Report 10905794 (Version 1)
Quarter: 2015Q1

REPORT INFORMATION
  Report Type: Report from Study
  Country: US (occurrence: US)
  Receive Date: 20150311
  Receipt Date: 20150311
  Transmission Date: 20150721
  Serious: Yes (Hospitalization)
  Sender: FDA-Public Use
  Company Number: US-SANOFI-AVENTIS-2013SA017589

PATIENT
  Age: 56 Year
  Sex: Male
  Weight: 74.4 kg

DRUGS (6)
  1. PRASUGREL [Suspect]
     Active Substance: PRASUGREL
     Indication: ANTIPLATELET THERAPY
     Route: 048
     Dates: start: 20110415
  2. DRUG ELUTING STENT [Suspect]
     Active Substance: DEVICE
     Indication: CORONARY ARTERY DISEASE
     Dates: start: 20110414, end: 20110414
  3. ASPIRIN. [Suspect]
     Active Substance: ASPIRIN
     Indication: ANTIPLATELET THERAPY
     Route: 048
     Dates: start: 20110415
  4. ATORVASTATIN [Concomitant]
     Active Substance: ATORVASTATIN
  5. PLAVIX [Suspect]
     Active Substance: CLOPIDOGREL BISULFATE
     Indication: ANTIPLATELET THERAPY
     Route: 048
     Dates: start: 20110413, end: 20110413
  6. ATENOLOL. [Concomitant]
     Active Substance: ATENOLOL
     Indication: HYPERTENSION

REACTIONS (1)
  - Chest pain [Unknown]

NARRATIVE: CASE EVENT DATE: 20111013
